FAERS Safety Report 4433948-2 (Version None)
Quarter: 2004Q3

REPORT INFORMATION
  Report Type: 
  Country: None (occurrence: None)
  Receive Date: 20040826
  Receipt Date: 20040628
  Transmission Date: 20050211
  Serious: Yes (Other)
  Sender: FDA-Public Use
  Company Number: AU-JNJFOC-20040805508

PATIENT
  Sex: Female

DRUGS (6)
  1. REMINYL [Suspect]
     Indication: DEMENTIA
  2. TRAMADOL SR [Suspect]
     Indication: PAIN
     Dates: end: 20040702
  3. ASPIRIN [Concomitant]
     Route: 049
  4. NITROGLYN 2% OINTMENT [Concomitant]
  5. TEMAZEPAM [Concomitant]
     Indication: INSOMNIA
     Route: 049
  6. CITALOPRAM [Concomitant]
     Indication: DEPRESSION
     Route: 049

REACTIONS (1)
  - TACHYPNOEA [None]
